FAERS Safety Report 24042971 (Version 1)
Quarter: 2024Q3

REPORT INFORMATION
  Report Type: Spontaneous
  Country: US (occurrence: US)
  Receive Date: 20240702
  Receipt Date: 20240702
  Transmission Date: 20241017
  Serious: No
  Sender: INTRA-CELLULAR THERAPIES
  Company Number: US-INTRA-CELLULAR THERAPIES, INC.-2024ICT00962

PATIENT
  Sex: Female

DRUGS (2)
  1. CAPLYTA [Suspect]
     Active Substance: LUMATEPERONE
     Dosage: 42 MG
  2. PIOGLITAZONE [Suspect]
     Active Substance: PIOGLITAZONE
     Dosage: UNK

REACTIONS (2)
  - Drug ineffective [Recovered/Resolved]
  - Labelled drug-drug interaction issue [Recovered/Resolved]
